FAERS Safety Report 7946610 (Version 4)
Quarter: 2014Q1

REPORT INFORMATION
  Report Type: Spontaneous
  Country: US (occurrence: US)
  Receive Date: 20110516
  Receipt Date: 20140218
  Transmission Date: 20141002
  Serious: Yes (Hospitalization, Other)
  Sender: FDA-Public Use
  Company Number: US-ASTRAZENECA-2011SE27241

PATIENT
  Age: 74 Year
  Sex: Female
  Weight: 90.7 kg

DRUGS (13)
  1. NEXIUM [Suspect]
     Indication: GASTROOESOPHAGEAL REFLUX DISEASE
     Route: 048
     Dates: start: 2009, end: 201312
  2. NEXIUM [Suspect]
     Indication: GASTROOESOPHAGEAL REFLUX DISEASE
     Route: 048
     Dates: start: 201312
  3. ATENOLOL [Suspect]
     Indication: HYPERTENSION
     Route: 048
     Dates: start: 2007
  4. LASIX [Suspect]
     Indication: PERICARDIAL EFFUSION
     Route: 065
  5. LASIX [Suspect]
     Indication: PERICARDIAL EFFUSION
     Route: 048
     Dates: start: 2006, end: 2013
  6. LASIX [Suspect]
     Indication: PERICARDIAL EFFUSION
     Route: 048
     Dates: start: 2013
  7. POTASSIUM [Concomitant]
     Indication: ELECTROLYTE SUBSTITUTION THERAPY
     Route: 048
     Dates: start: 2006, end: 2013
  8. POTASSIUM [Concomitant]
     Indication: ELECTROLYTE SUBSTITUTION THERAPY
     Route: 048
     Dates: start: 2013
  9. KEPPRA [Concomitant]
     Indication: CONVULSION
     Route: 048
     Dates: start: 2013
  10. DILTIAZEM ER [Concomitant]
     Indication: ARTERIAL DISORDER
     Route: 048
     Dates: start: 2013
  11. CYMBALTA [Concomitant]
     Indication: PAIN
     Route: 048
     Dates: start: 2012
  12. CYMBALTA [Concomitant]
     Indication: DEPRESSION
     Route: 048
     Dates: start: 2012
  13. LIPITOR [Concomitant]
     Indication: BLOOD CHOLESTEROL
     Route: 048
     Dates: start: 2006

REACTIONS (17)
  - Convulsion [Recovering/Resolving]
  - Gastric disorder [Unknown]
  - Syncope [Unknown]
  - Fall [Recovered/Resolved]
  - Cerebrovascular accident [Unknown]
  - Loss of consciousness [Not Recovered/Not Resolved]
  - Cardiac disorder [Unknown]
  - Throat irritation [Recovered/Resolved]
  - Gastrooesophageal reflux disease [Recovered/Resolved]
  - Weight decreased [Recovered/Resolved]
  - Laryngitis [Not Recovered/Not Resolved]
  - Sinus disorder [Unknown]
  - Asthenia [Recovered/Resolved]
  - Nasopharyngitis [Recovered/Resolved]
  - Weight fluctuation [Not Recovered/Not Resolved]
  - Insomnia [Recovered/Resolved]
  - Drug dose omission [Unknown]
